FAERS Safety Report 5469678-8 (Version None)
Quarter: 2007Q3

REPORT INFORMATION
  Report Type: 
  Country: None (occurrence: None)
  Receive Date: 20070924
  Receipt Date: 20070919
  Transmission Date: 20080115
  Serious: Yes (Other)
  Sender: FDA-Public Use
  Company Number: 0709-758

PATIENT

DRUGS (1)
  1. FORMOTEROL 12 UG DRY POWDER INHALATION [Suspect]
     Indication: CHRONIC OBSTRUCTIVE PULMONARY DISEASE
     Dosage: 12 UG, BID, INH
     Route: 055

REACTIONS (1)
  - ATRIAL FLUTTER [None]
